FAERS Safety Report 12525365 (Version 1)
Quarter: 2016Q3

REPORT INFORMATION
  Report Type: Report from Study
  Country: BR (occurrence: BR)
  Receive Date: 20160704
  Receipt Date: 20160704
  Transmission Date: 20161109
  Serious: Yes (Other)
  Sender: FDA-Public Use
  Company Number: ALCN2016BR004439

PATIENT
  Sex: Female
  Weight: 62 kg

DRUGS (2)
  1. VITALUX PLUS [Suspect]
     Active Substance: VITAMINS
     Indication: ROUTINE HEALTH MAINTENANCE
     Dosage: 1 CAPSULE, QHS
     Route: 048
  2. GLUCOFORMIN [Concomitant]
     Active Substance: METFORMIN HYDROCHLORIDE
     Indication: DIABETES MELLITUS
     Dosage: UNK
     Route: 048

REACTIONS (2)
  - Cataract [Unknown]
  - Visual impairment [Unknown]
